FAERS Safety Report 25394306 (Version 1)
Quarter: 2025Q2

REPORT INFORMATION
  Report Type: Spontaneous
  Country: US (occurrence: US)
  Receive Date: 20250604
  Receipt Date: 20250604
  Transmission Date: 20250717
  Serious: No
  Sender: AMGEN
  Company Number: US-AMGEN-USASP2025105632

PATIENT
  Age: 56 Year
  Sex: Female

DRUGS (1)
  1. REPATHA [Suspect]
     Active Substance: EVOLOCUMAB
     Indication: Product used for unknown indication
     Dosage: 140 MILLIGRAM, Q2WK
     Route: 065
     Dates: start: 20250525

REACTIONS (5)
  - Back pain [Recovered/Resolved]
  - Influenza like illness [Not Recovered/Not Resolved]
  - Nasopharyngitis [Not Recovered/Not Resolved]
  - Urticaria [Not Recovered/Not Resolved]
  - Ill-defined disorder [Recovering/Resolving]

NARRATIVE: CASE EVENT DATE: 20250525
